FAERS Safety Report 21967973 (Version 2)
Quarter: 2023Q1

REPORT INFORMATION
  Report Type: Spontaneous
  Country: US (occurrence: US)
  Receive Date: 20230208
  Receipt Date: 20230306
  Transmission Date: 20230418
  Serious: Yes (Life-Threatening, Hospitalization)
  Sender: FDA-Public Use
  Company Number: US-Vifor (International) Inc.-VIT-2023-00871

PATIENT
  Age: 74 Year
  Sex: Female
  Weight: 80.1 kg

DRUGS (1)
  1. MIRCERA [Suspect]
     Active Substance: METHOXY POLYETHYLENE GLYCOL-EPOETIN BETA
     Indication: Anaemia
     Route: 042
     Dates: start: 20221216, end: 20221216

REACTIONS (6)
  - Loss of consciousness [Recovering/Resolving]
  - Respiratory arrest [Recovering/Resolving]
  - Speech disorder [Recovering/Resolving]
  - Cyanosis [Recovering/Resolving]
  - Eye movement disorder [Recovering/Resolving]
  - Chest pain [Recovering/Resolving]

NARRATIVE: CASE EVENT DATE: 20221216
